FAERS Safety Report 14962196 (Version 1)
Quarter: 2018Q2

REPORT INFORMATION
  Report Type: Spontaneous
  Country: MX (occurrence: MX)
  Receive Date: 20180601
  Receipt Date: 20180601
  Transmission Date: 20180711
  Serious: Yes (Other)
  Sender: FDA-Public Use
  Company Number: MX-ROCHE-2132480

PATIENT

DRUGS (9)
  1. NIVOLUMAB [Concomitant]
     Active Substance: NIVOLUMAB
     Dosage: SECOND LINE
     Route: 065
     Dates: start: 201702, end: 201710
  2. HERCEPTIN [Suspect]
     Active Substance: TRASTUZUMAB
     Indication: TRANSITIONAL CELL CARCINOMA
     Dosage: THIRD LINE TREATMENT FINISHED
     Route: 042
  3. PERJETA [Suspect]
     Active Substance: PERTUZUMAB
     Route: 042
  4. DOCETAXEL. [Suspect]
     Active Substance: DOCETAXEL
     Indication: TRANSITIONAL CELL CARCINOMA
     Dosage: THIRD LINE. TREATMENT FINISHED
     Route: 065
  5. PEMETREXED. [Suspect]
     Active Substance: PEMETREXED
     Indication: TRANSITIONAL CELL CARCINOMA
     Route: 065
  6. CISPLATIN. [Concomitant]
     Active Substance: CISPLATIN
     Indication: METASTASES TO LIVER
     Dosage: 6 CYCLES
     Route: 065
  7. GEMCITABINE [Concomitant]
     Active Substance: GEMCITABINE\GEMCITABINE HYDROCHLORIDE
     Indication: METASTASES TO LIVER
     Dosage: 6 CYCLES
     Route: 065
  8. HERCEPTIN [Suspect]
     Active Substance: TRASTUZUMAB
     Dosage: CURRENTLY ONGOING.
     Route: 042
  9. PERJETA [Suspect]
     Active Substance: PERTUZUMAB
     Indication: TRANSITIONAL CELL CARCINOMA
     Dosage: THIRD LINE. TREATMENT FINISHED
     Route: 042

REACTIONS (3)
  - Off label use [Unknown]
  - Gastrointestinal toxicity [Unknown]
  - Neutropenia [Unknown]
